FAERS Safety Report 10873720 (Version 1)
Quarter: 2015Q1

REPORT INFORMATION
  Report Type: Spontaneous
  Country: JP (occurrence: None)
  Receive Date: 20150224
  Receipt Date: 20150224
  Transmission Date: 20150721
  Serious: Yes (Hospitalization, Other)
  Sender: FDA-Public Use
  Company Number: 1553955

PATIENT
  Age: 48 Year
  Sex: Female

DRUGS (2)
  1. PHENYTOIN SODIUM. [Suspect]
     Active Substance: PHENYTOIN SODIUM
     Indication: EPILEPSY
     Dosage: X NOS
     Route: 048
  2. VALPROIC ACID. [Concomitant]
     Active Substance: VALPROIC ACID

REACTIONS (8)
  - Pyrexia [None]
  - Antineutrophil cytoplasmic antibody positive [None]
  - Selective IgA immunodeficiency [None]
  - Fatigue [None]
  - Proteinuria [None]
  - Haematuria [None]
  - Glomerulonephritis [None]
  - Renal failure [None]
